FAERS Safety Report 6901651-2 (Version None)
Quarter: 2010Q3

REPORT INFORMATION
  Report Type: 
  Country: None (occurrence: None)
  Receive Date: 20100803
  Receipt Date: 20080320
  Transmission Date: 20110219
  Serious: Yes (Other)
  Sender: FDA-Public Use
  Company Number: US-PFIZER INC-2008015828

PATIENT
  Age: 23 Year
  Sex: Male
  Weight: 79.4 kg

DRUGS (3)
  1. LYRICA [Suspect]
     Indication: TESTICULAR PAIN
     Route: 048
  2. ATIVAN [Suspect]
  3. VICODIN [Suspect]

REACTIONS (3)
  - DRUG ABUSE [None]
  - EUPHORIC MOOD [None]
  - OVERDOSE [None]
